FAERS Safety Report 23059752 (Version 2)
Quarter: 2023Q4

REPORT INFORMATION
  Report Type: Report from Study
  Country: JP (occurrence: None)
  Receive Date: 20231012
  Receipt Date: 20231117
  Transmission Date: 20240109
  Serious: Yes (Hospitalization, Other)
  Sender: FDA-Public Use
  Company Number: 2023A227721

PATIENT
  Age: 63 Year
  Sex: Male

DRUGS (3)
  1. LYNPARZA [Interacting]
     Active Substance: OLAPARIB
     Indication: Pancreatic carcinoma
     Route: 048
     Dates: start: 20230707, end: 2023
  2. LYNPARZA [Interacting]
     Active Substance: OLAPARIB
     Indication: Pancreatic carcinoma
     Dosage: DOSE UNKNOWN
     Route: 048
     Dates: start: 2023, end: 20230922
  3. PAXLOVID [Interacting]
     Active Substance: NIRMATRELVIR\RITONAVIR
     Indication: COVID-19
     Dosage: DOSE UNKNOWN
     Dates: start: 20230801, end: 20230805

REACTIONS (5)
  - Malignant neoplasm progression [Unknown]
  - COVID-19 [Unknown]
  - Labelled drug-drug interaction issue [Unknown]
  - Pancytopenia [Recovering/Resolving]
  - Drug level increased [Unknown]

NARRATIVE: CASE EVENT DATE: 20230101
